FAERS Safety Report 4296466-0 (Version None)
Quarter: 2004Q1

REPORT INFORMATION
  Report Type: 
  Country: None (occurrence: None)
  Receive Date: 20040217
  Receipt Date: 20040205
  Transmission Date: 20041129
  Serious: Yes (Death)
  Sender: FDA-Public Use
  Company Number: US-BRISTOL-MYERS SQUIBB COMPANY-12498036

PATIENT
  Age: 18 Year
  Sex: Female

DRUGS (4)
  1. ABILIFY [Suspect]
     Route: 048
     Dates: start: 20031101
  2. TRILEPTAL [Concomitant]
  3. RISPERDAL [Concomitant]
  4. CONTRACEPTIVE [Concomitant]

REACTIONS (3)
  - CONVULSION [None]
  - HEAD BANGING [None]
  - INTENTIONAL SELF-INJURY [None]
